FAERS Safety Report 8966829 (Version 3)
Quarter: 2013Q1

REPORT INFORMATION
  Report Type: Spontaneous
  Country: CA (occurrence: CA)
  Receive Date: 20121214
  Receipt Date: 20130118
  Transmission Date: 20140127
  Serious: Yes (Other)
  Sender: FDA-Public Use
  Company Number: CA-AMGEN-CANSP2012080010

PATIENT
  Age: 76 Year
  Sex: Male
  Weight: 118 kg

DRUGS (3)
  1. ARANESP [Suspect]
     Indication: PRODUCT USED FOR UNKNOWN INDICATION
     Dosage: 150 MUG, QWK
     Route: 042
     Dates: start: 20100829
  2. VENOFER [Concomitant]
     Indication: BLOOD IRON DECREASED
     Dosage: 100 MG, UNK
     Route: 042
     Dates: start: 20120629
  3. FERROUS GLUCONATE [Concomitant]
     Indication: BLOOD IRON DECREASED
     Dosage: 300 MG, BID
     Dates: start: 20091006, end: 20120629

REACTIONS (1)
  - Therapeutic response decreased [Unknown]
